FAERS Safety Report 6595731-1 (Version None)
Quarter: 2010Q1

REPORT INFORMATION
  Report Type: 
  Country: None (occurrence: None)
  Receive Date: 20100219
  Receipt Date: 20100219
  Transmission Date: 20100710
  Serious: Yes (Hospitalization)
  Sender: FDA-Public Use
  Company Number: None

PATIENT
  Age: 59 Year
  Sex: Male
  Weight: 55.3388 kg

DRUGS (1)
  1. MEGESTROL ACETATE [Suspect]
     Indication: CACHEXIA
     Dosage: 400MG PO BID AT LEAST 2.5 YEARS (MAY HAVE BEEN INTERMITTENT THERAPY)
     Route: 048

REACTIONS (4)
  - ABNORMAL BEHAVIOUR [None]
  - INTRACARDIAC THROMBUS [None]
  - PULMONARY EMBOLISM [None]
  - THROMBOSIS [None]
